FAERS Safety Report 14580559 (Version 1)
Quarter: 2018Q1

REPORT INFORMATION
  Report Type: Spontaneous
  Country: US (occurrence: US)
  Receive Date: 20180228
  Receipt Date: 20180228
  Transmission Date: 20180509
  Serious: No
  Sender: FDA-Public Use
  Company Number: US-INSYS THERAPEUTICS, INC-INS201711-000672

PATIENT
  Sex: Female

DRUGS (6)
  1. MORPHINE ER [Concomitant]
     Active Substance: MORPHINE
     Indication: PAIN
  2. LYRICA [Concomitant]
     Active Substance: PREGABALIN
     Indication: PAIN
  3. LIDOCAINE PATCH [Concomitant]
     Active Substance: LIDOCAINE
     Indication: PAIN
     Route: 061
  4. DEXAMETHASONE. [Concomitant]
     Active Substance: DEXAMETHASONE
  5. MORPHINE IR [Concomitant]
     Active Substance: MORPHINE
     Indication: PAIN
  6. SUBSYS [Suspect]
     Active Substance: FENTANYL
     Indication: BREAKTHROUGH PAIN
     Route: 060
     Dates: start: 20171115

REACTIONS (2)
  - Drug ineffective [Unknown]
  - Insomnia [Unknown]
